FAERS Safety Report 6547974-0 (Version None)
Quarter: 2010Q1

REPORT INFORMATION
  Report Type: 
  Country: None (occurrence: None)
  Receive Date: 20100124
  Receipt Date: 20091207
  Transmission Date: 20100710
  Serious: No
  Sender: FDA-Public Use
  Company Number: US-ALEXION-A200901050

PATIENT
  Sex: Female

DRUGS (3)
  1. SOLIRIS [Suspect]
     Indication: PAROXYSMAL NOCTURNAL HAEMOGLOBINURIA
     Dosage: 600 MG, QW
     Route: 042
     Dates: start: 20091202, end: 20091223
  2. FEOSOL [Concomitant]
     Dosage: 325 MG, QD
  3. FOLATE [Concomitant]
     Dosage: 1 MG, QD

REACTIONS (1)
  - BACK PAIN [None]
